FAERS Safety Report 5558994-7 (Version None)
Quarter: 2007Q4

REPORT INFORMATION
  Report Type: 
  Country: None (occurrence: None)
  Receive Date: 20071214
  Receipt Date: 20071204
  Transmission Date: 20080405
  Serious: Yes (Hospitalization, Other)
  Sender: FDA-Public Use
  Company Number: US-PFIZER INC-2007104113

PATIENT
  Sex: Female

DRUGS (38)
  1. CHANTIX [Suspect]
     Indication: SMOKING CESSATION THERAPY
  2. NICOTINE [Suspect]
  3. OXYGEN [Concomitant]
  4. ADVAIR DISKUS 100/50 [Concomitant]
  5. ADVAIR DISKUS 100/50 [Concomitant]
  6. SPIRIVA [Concomitant]
  7. SPIRIVA [Concomitant]
  8. ALL OTHER THERAPEUTIC PRODUCTS [Concomitant]
  9. ALL OTHER THERAPEUTIC PRODUCTS [Concomitant]
  10. PREVACID [Concomitant]
  11. PREVACID [Concomitant]
  12. DIFLUCAN [Concomitant]
  13. DIFLUCAN [Concomitant]
  14. MAXIPIME [Concomitant]
  15. MAXIPIME [Concomitant]
  16. PREDNISONE [Concomitant]
  17. PREDNISONE [Concomitant]
  18. ALBUTEROL [Concomitant]
  19. ALBUTEROL [Concomitant]
  20. VERAPAMIL [Concomitant]
  21. VERAPAMIL [Concomitant]
  22. SOLU-MEDROL [Concomitant]
  23. SOLU-MEDROL [Concomitant]
  24. DOCUSATE SODIUM [Concomitant]
  25. DOCUSATE SODIUM [Concomitant]
  26. GUAIFENESIN [Concomitant]
  27. GUAIFENESIN [Concomitant]
  28. ALPRAZOLAM [Concomitant]
  29. ALPRAZOLAM [Concomitant]
  30. SEROQUEL [Concomitant]
  31. SEROQUEL [Concomitant]
  32. VITAMIN B-12 [Concomitant]
  33. VITAMIN B-12 [Concomitant]
  34. SOMA [Concomitant]
  35. SOMA [Concomitant]
  36. RELAFEN [Concomitant]
  37. RELAFEN [Concomitant]
  38. MONTELUKAST SODIUM [Concomitant]

REACTIONS (10)
  - CARBON MONOXIDE POISONING [None]
  - DIABETES MELLITUS [None]
  - DRUG WITHDRAWAL SYNDROME [None]
  - DYSPNOEA [None]
  - FEELING COLD [None]
  - HYPERHIDROSIS [None]
  - INSOMNIA [None]
  - IRRITABILITY [None]
  - NIGHTMARE [None]
  - WEIGHT INCREASED [None]
